FAERS Safety Report 4920894-0 (Version None)
Quarter: 2006Q1

REPORT INFORMATION
  Report Type: 
  Country: None (occurrence: None)
  Receive Date: 20060223
  Receipt Date: 20050719
  Transmission Date: 20060701
  Serious: Yes (Hospitalization)
  Sender: FDA-Public Use
  Company Number: US-MERCK-0507USA02788

PATIENT
  Age: 46 Year
  Sex: Male
  Weight: 130 kg

DRUGS (4)
  1. VIOXX [Suspect]
     Indication: MONARTHRITIS
     Route: 048
     Dates: start: 20000504, end: 20000101
  2. VIOXX [Suspect]
     Route: 048
     Dates: start: 20030924, end: 20040910
  3. VIOXX [Suspect]
     Route: 048
     Dates: start: 20000504, end: 20000101
  4. VIOXX [Suspect]
     Route: 048
     Dates: start: 20030924, end: 20040910

REACTIONS (6)
  - ANXIETY [None]
  - CHEST PAIN [None]
  - FEAR [None]
  - INJURY [None]
  - MYOCARDIAL INFARCTION [None]
  - PAIN [None]
